FAERS Safety Report 12281922 (Version 1)
Quarter: 2016Q2

REPORT INFORMATION
  Report Type: Report from Study
  Country: KR (occurrence: KR)
  Receive Date: 20160419
  Receipt Date: 20160419
  Transmission Date: 20160815
  Serious: Yes (Hospitalization)
  Sender: FDA-Public Use
  Company Number: KR-SA-2016SA073048

PATIENT
  Age: 66 Year
  Sex: Male
  Weight: 56 kg

DRUGS (3)
  1. ELPLAT [Suspect]
     Active Substance: OXALIPLATIN
     Indication: GASTRIC CANCER
     Route: 042
     Dates: start: 20150730, end: 20160328
  2. TAS-118 [Suspect]
     Active Substance: INVESTIGATIONAL PRODUCT
     Route: 065
     Dates: end: 20160328
  3. TAS-118 [Suspect]
     Active Substance: INVESTIGATIONAL PRODUCT
     Route: 048
     Dates: start: 20150730, end: 20150806

REACTIONS (2)
  - Hydronephrosis [Unknown]
  - Urinary tract obstruction [Unknown]

NARRATIVE: CASE EVENT DATE: 20160407
